FAERS Safety Report 16468694 (Version 1)
Quarter: 2019Q2

REPORT INFORMATION
  Report Type: Spontaneous
  Country: US (occurrence: US)
  Receive Date: 20190514
  Receipt Date: 20190514
  Transmission Date: 20190711
  Serious: Yes (Hospitalization)
  Sender: FDA-Public Use
  Company Number: None

PATIENT
  Age: 15 Year
  Sex: Female

DRUGS (7)
  1. SODIUM CHLORIDE. [Concomitant]
     Active Substance: SODIUM CHLORIDE
  2. PULMOZYME [Suspect]
     Active Substance: DORNASE ALFA
     Indication: CYSTIC FIBROSIS
     Dosage: ?          OTHER DOSE:1MG/1ML;?
     Route: 055
     Dates: start: 20170123
  3. ZENPEP [Concomitant]
     Active Substance: PANCRELIPASE AMYLASE\PANCRELIPASE LIPASE\PANCRELIPASE PROTEASE
  4. AQUADEKS [Concomitant]
     Active Substance: MINERALS\VITAMINS
  5. FLUTICASONE. [Concomitant]
     Active Substance: FLUTICASONE
  6. KALYDECO [Suspect]
     Active Substance: IVACAFTOR
     Indication: CYSTIC FIBROSIS
     Route: 048
     Dates: start: 20160609
  7. OMPERAZOLE [Concomitant]
     Active Substance: OMEPRAZOLE

REACTIONS (3)
  - Infection [None]
  - Acne [None]
  - Device related infection [None]

NARRATIVE: CASE EVENT DATE: 20190418
